FAERS Safety Report 5010873-X (Version None)
Quarter: 2006Q2

REPORT INFORMATION
  Report Type: 
  Country: None (occurrence: None)
  Receive Date: 20060525
  Receipt Date: 20060517
  Transmission Date: 20061013
  Serious: Yes (Death)
  Sender: FDA-Public Use
  Company Number: FR-GLAXOSMITHKLINE-B0424850A

PATIENT
  Age: 81 Year
  Sex: Female

DRUGS (9)
  1. AUGMENTIN '125' [Suspect]
     Indication: TRACHEITIS
     Dosage: 3G PER DAY
     Route: 048
     Dates: start: 20060314, end: 20060317
  2. BISOPROLOL FUMARATE [Concomitant]
     Route: 065
  3. CORTANCYL [Concomitant]
     Route: 065
  4. NEXIUM [Concomitant]
     Route: 065
  5. ALLOPURINOL [Concomitant]
     Route: 065
  6. VASTAREL [Concomitant]
     Route: 065
  7. ACETAMINOPHEN AND TRAMADOL HCL [Concomitant]
     Route: 065
  8. OSTRAM [Concomitant]
     Route: 065
  9. CETORNAN [Concomitant]
     Route: 065

REACTIONS (13)
  - BLOOD CREATININE INCREASED [None]
  - BLOOD IMMUNOGLOBULIN E INCREASED [None]
  - DERMATITIS EXFOLIATIVE [None]
  - DRUG RASH WITH EOSINOPHILIA AND SYSTEMIC SYMPTOMS [None]
  - EOSINOPHILIA [None]
  - ERYTHEMA MULTIFORME [None]
  - MOUTH ULCERATION [None]
  - PRURIGO [None]
  - PYREXIA [None]
  - RASH GENERALISED [None]
  - RASH MACULO-PAPULAR [None]
  - SEPSIS [None]
  - SKIN DISORDER [None]
